FAERS Safety Report 25478935 (Version 1)
Quarter: 2025Q2

REPORT INFORMATION
  Report Type: Spontaneous
  Country: RU (occurrence: RU)
  Receive Date: 20250625
  Receipt Date: 20250625
  Transmission Date: 20250717
  Serious: Yes (Other)
  Sender: BAYER HEALTHCARE PHARMACEUTICALS INC.
  Company Number: RU-BAYER-2025A059272

PATIENT
  Age: 40 Year
  Sex: Female

DRUGS (1)
  1. DIENOGEST\ESTRADIOL VALERATE [Suspect]
     Active Substance: DIENOGEST\ESTRADIOL VALERATE
     Indication: Contraception
     Route: 048

REACTIONS (4)
  - Pregnancy on oral contraceptive [Recovered/Resolved]
  - Abortion spontaneous [None]
  - Drug ineffective [None]
  - Exposure during pregnancy [None]
